FAERS Safety Report 26108113 (Version 1)
Quarter: 2025Q4

REPORT INFORMATION
  Report Type: Spontaneous
  Country: US (occurrence: None)
  Receive Date: 20251128
  Receipt Date: 20251128
  Transmission Date: 20260118
  Serious: No
  Sender: FDA-CTU
  Company Number: None

PATIENT
  Age: 44 Year
  Sex: Female
  Weight: 83.25 kg

DRUGS (10)
  1. TALTZ [Suspect]
     Active Substance: IXEKIZUMAB
     Indication: Ankylosing spondylitis
     Dates: start: 20250926
  2. TALTZ [Concomitant]
     Active Substance: IXEKIZUMAB
  3. GABAPENTIN [Concomitant]
     Active Substance: GABAPENTIN
  4. Journavx 50mg BID [Concomitant]
  5. meloxicam 7.5mg daily [Concomitant]
  6. pantoprazole 40mg EC once daily [Concomitant]
  7. LIDOCAINE [Concomitant]
     Active Substance: LIDOCAINE
  8. Tylenol 650mg [Concomitant]
  9. IBUPROFEN [Concomitant]
     Active Substance: IBUPROFEN
  10. omega 3 fish oil 6,000 mg [Concomitant]

REACTIONS (1)
  - Injection site urticaria [None]
